FAERS Safety Report 9252099 (Version 4)
Quarter: 2013Q2

REPORT INFORMATION
  Report Type: Report from Study
  Country: FR (occurrence: FR)
  Receive Date: 20130424
  Receipt Date: 20130516
  Transmission Date: 20140414
  Serious: Yes (Hospitalization)
  Sender: FDA-Public Use
  Company Number: FR-EISAI INC-E7389-03775-CLI-FR

PATIENT
  Age: 62 Year
  Sex: Female
  Weight: 55 kg

DRUGS (1)
  1. E7389 (BOLD) [Suspect]
     Indication: SARCOMA
     Route: 041
     Dates: start: 20120801

REACTIONS (1)
  - Intestinal obstruction [Recovered/Resolved]
